FAERS Safety Report 9891621 (Version 4)
Quarter: 2014Q1

REPORT INFORMATION
  Report Type: Spontaneous
  Country: JP (occurrence: JP)
  Receive Date: 20140212
  Receipt Date: 20140320
  Transmission Date: 20141002
  Serious: Yes (Other)
  Sender: FDA-Public Use
  Company Number: JP-PFIZER INC-2013319639

PATIENT
  Age: 60 Year
  Sex: Male

DRUGS (2)
  1. INLYTA [Suspect]
     Indication: METASTATIC RENAL CELL CARCINOMA
     Dosage: 10 MG, 1X/DAY
     Route: 048
  2. ZOMETA [Concomitant]
     Indication: METASTASES TO BONE
     Dosage: UNK

REACTIONS (9)
  - Ileus paralytic [Recovered/Resolved]
  - Cholecystitis [Recovered/Resolved]
  - Dysphonia [Recovered/Resolved]
  - Hypothyroidism [Recovered/Resolved]
  - Malaise [Not Recovered/Not Resolved]
  - Transaminases increased [Recovering/Resolving]
  - Dysphagia [Recovered/Resolved]
  - Decreased appetite [Not Recovered/Not Resolved]
  - Weight decreased [Not Recovered/Not Resolved]
